FAERS Safety Report 8836335 (Version 3)
Quarter: 2012Q4

REPORT INFORMATION
  Report Type: 
  Country: US (occurrence: US)
  Receive Date: 20121011
  Receipt Date: 20121218
  Transmission Date: 20130627
  Serious: Yes (Death)
  Sender: FDA-Public Use
  Company Number: US-PFIZER INC-2012248952

PATIENT
  Age: 86 Year
  Sex: Female

DRUGS (19)
  1. REVATIO [Suspect]
     Indication: PRIMARY PULMONARY HYPERTENSION
     Dosage: 20 mg, 3x/day
     Dates: start: 20120724
  2. ACETYLSALICYLIC ACID [Concomitant]
     Dosage: 81 mg, 1x/day
     Route: 048
  3. CALCIUM CARBONATE/ERGOCALCIFEROL [Concomitant]
     Dosage: 600-400 mg-unit Tablet, 1 p.o. twice daily
     Route: 048
  4. DIGOXIN [Concomitant]
     Dosage: 125 ug, 1 every other day
     Route: 048
  5. DOXYCYCLINE MONOHYDRATE [Concomitant]
     Dosage: 100 mg, 2x/day
     Route: 048
  6. FOLIC ACID [Concomitant]
     Dosage: 1 mg, 1x/day
     Route: 048
  7. GABAPENTIN [Concomitant]
     Dosage: 300 mg, daily HS
     Route: 048
  8. LISINOPRIL [Concomitant]
     Dosage: 5 mg,1 in am and 2 tabs in evening
     Route: 048
  9. LOVENOX [Concomitant]
     Dosage: 50 mg, 2x/day
     Route: 058
  10. MEGESTROL [Concomitant]
     Dosage: 20 mg, 1x/day
     Route: 048
  11. MELOXICAM [Concomitant]
     Dosage: 7.5 mg, 1x/day
     Route: 048
  12. METOPROLOL TARTRATE [Concomitant]
     Dosage: 25 mg, 1/2 tab twice daily
  13. RESTORIL [Concomitant]
     Dosage: 15 mg, UNK
  14. ROBITUSSIN SEVERE CONGESTION [Concomitant]
     Dosage: 100 mg/5 mL Liquid
  15. TORSEMIDE [Concomitant]
     Dosage: 10 mg, 1 tab daily or as directed
  16. TYLENOL EXTRA-STRENGTH [Concomitant]
     Indication: PAIN
     Dosage: 500 mg, 2 tabs every 6 hours
  17. WARFARIN [Concomitant]
     Dosage: 2.5 mg, 1 p.o. daily and as directed
     Route: 048
  18. VITAMIN D [Concomitant]
     Dosage: 2,000 unit Capsule, 1 p.o. daily
     Route: 048
  19. XALATAN [Concomitant]
     Dosage: 0.005 %, Drops, Take as Directed

REACTIONS (1)
  - Fall [Fatal]
